FAERS Safety Report 4456523-2 (Version None)
Quarter: 2004Q3

REPORT INFORMATION
  Report Type: 
  Country: None (occurrence: None)
  Receive Date: 20040923
  Receipt Date: 20040831
  Transmission Date: 20050211
  Serious: Yes (Other)
  Sender: FDA-Public Use
  Company Number: US-JNJFOC-20040606041

PATIENT
  Sex: Female
  Weight: 64.86 kg

DRUGS (11)
  1. REMICADE [Suspect]
     Route: 042
  2. REMICADE [Suspect]
     Route: 042
  3. REMICADE [Suspect]
     Route: 042
  4. REMICADE [Suspect]
     Route: 042
  5. REMICADE [Suspect]
     Route: 042
  6. REMICADE [Suspect]
     Route: 042
  7. PENTASA [Concomitant]
     Route: 049
  8. MERCAPTOPURINE [Concomitant]
     Dosage: TUESDAY AND THURSDAY
     Route: 049
  9. ACTIVELLE [Concomitant]
  10. ACTIVELLE [Concomitant]
  11. ZOLOFT [Concomitant]

REACTIONS (1)
  - BLINDNESS [None]
